FAERS Safety Report 19075855 (Version 1)
Quarter: 2021Q1

REPORT INFORMATION
  Report Type: Spontaneous
  Country: US (occurrence: US)
  Receive Date: 20210331
  Receipt Date: 20210331
  Transmission Date: 20210420
  Serious: No
  Sender: FDA-Public Use
  Company Number: US-SA-2021SA102862

PATIENT
  Sex: Female
  Weight: 50.79 kg

DRUGS (17)
  1. PEPCID [Concomitant]
     Active Substance: FAMOTIDINE
  2. FAMOTIDINE. [Concomitant]
     Active Substance: FAMOTIDINE
  3. VITAMINS NOS [Concomitant]
     Active Substance: VITAMINS
  4. CEREZYME [Suspect]
     Active Substance: IMIGLUCERASE
     Indication: LIPIDOSIS
  5. CEPHALEXIN [CEFALEXIN] [Concomitant]
     Active Substance: CEPHALEXIN
  6. GABAPENTIN. [Concomitant]
     Active Substance: GABAPENTIN
  7. CEREZYME [Suspect]
     Active Substance: IMIGLUCERASE
     Indication: GAUCHER^S DISEASE
     Dosage: 3600 U (90 ML), QOW
     Route: 042
     Dates: start: 19940728
  8. EPINEPHRINE. [Concomitant]
     Active Substance: EPINEPHRINE
  9. NITROFURANTOIN. [Concomitant]
     Active Substance: NITROFURANTOIN
  10. OXYBUTYNIN. [Concomitant]
     Active Substance: OXYBUTYNIN CHLORIDE
  11. STERILE WATER [Concomitant]
     Active Substance: WATER
  12. TYLENOL [Concomitant]
     Active Substance: ACETAMINOPHEN
  13. VITAMIN C [Concomitant]
     Active Substance: ASCORBIC ACID
  14. NORMAL SALINE [Concomitant]
     Active Substance: SODIUM CHLORIDE
  15. OXYCODON [Concomitant]
     Active Substance: OXYCODONE
  16. SODIUM CHLORIDE. [Concomitant]
     Active Substance: SODIUM CHLORIDE
  17. METHADONE [Concomitant]
     Active Substance: METHADONE HYDROCHLORIDE

REACTIONS (1)
  - Urinary tract infection [Recovered/Resolved]

NARRATIVE: CASE EVENT DATE: 202103
